FAERS Safety Report 12113763 (Version 1)
Quarter: 2016Q1

REPORT INFORMATION
  Report Type: Spontaneous
  Country: US (occurrence: US)
  Receive Date: 20160225
  Receipt Date: 20160225
  Transmission Date: 20160526
  Serious: Yes (Other)
  Sender: FDA-Public Use
  Company Number: US-BEH-2016058943

PATIENT
  Sex: Female
  Weight: 68 kg

DRUGS (34)
  1. OMEPRAZOLE. [Concomitant]
     Active Substance: OMEPRAZOLE
  2. ZAFIRLUKAST. [Concomitant]
     Active Substance: ZAFIRLUKAST
  3. LEVALBUTEROL. [Concomitant]
     Active Substance: LEVALBUTEROL
  4. FLORASTOR [Concomitant]
     Active Substance: SACCHAROMYCES CEREVISIAE
  5. HIZENTRA [Suspect]
     Active Substance: HUMAN IMMUNOGLOBULIN G
     Indication: SELECTIVE IGG SUBCLASS DEFICIENCY
     Route: 058
  6. EPIPEN [Concomitant]
     Active Substance: EPINEPHRINE
  7. METOPROLOL. [Concomitant]
     Active Substance: METOPROLOL
  8. ASPIRIN. [Concomitant]
     Active Substance: ASPIRIN
  9. BENZONATATE. [Concomitant]
     Active Substance: BENZONATATE
  10. MIRALAX [Concomitant]
     Active Substance: POLYETHYLENE GLYCOL 3350
  11. LIDOCAINE. [Concomitant]
     Active Substance: LIDOCAINE
  12. METRONIDAZOLE. [Concomitant]
     Active Substance: METRONIDAZOLE
  13. TOBI [Concomitant]
     Active Substance: TOBRAMYCIN
  14. HAIRS SKIN NAILS VITAMIN [Concomitant]
  15. RIFADIN [Concomitant]
     Active Substance: RIFAMPIN
  16. SPIRIVA [Concomitant]
     Active Substance: TIOTROPIUM BROMIDE MONOHYDRATE
  17. GAMUNEX [Concomitant]
     Active Substance: HUMAN IMMUNOGLOBULIN G
  18. LIPITOR [Concomitant]
     Active Substance: ATORVASTATIN CALCIUM
  19. NORMAL SALINE [Concomitant]
     Active Substance: SODIUM CHLORIDE
  20. CLARITHROMYCIN. [Concomitant]
     Active Substance: CLARITHROMYCIN
  21. SYMBICORT [Concomitant]
     Active Substance: BUDESONIDE\FORMOTEROL FUMARATE DIHYDRATE
  22. BIOTIN [Concomitant]
     Active Substance: BIOTIN
  23. XANAX [Concomitant]
     Active Substance: ALPRAZOLAM
  24. ETHAMBUTOL [Concomitant]
     Active Substance: ETHAMBUTOL HYDROCHLORIDE
  25. XOPENEX [Concomitant]
     Active Substance: LEVALBUTEROL HYDROCHLORIDE
  26. SODIUM CHLORIDE. [Concomitant]
     Active Substance: SODIUM CHLORIDE
  27. ACETAMINOPHEN. [Concomitant]
     Active Substance: ACETAMINOPHEN
  28. CIPRO [Concomitant]
     Active Substance: CIPROFLOXACIN HYDROCHLORIDE
  29. DULERA [Concomitant]
     Active Substance: FORMOTEROL FUMARATE DIHYDRATE\MOMETASONE FUROATE
  30. DIPHENHYDRAMINE. [Concomitant]
     Active Substance: DIPHENHYDRAMINE
  31. RIFAMPIN. [Concomitant]
     Active Substance: RIFAMPIN
  32. MAGNESIUM [Concomitant]
     Active Substance: MAGNESIUM
  33. FERROUS SULFATE [Concomitant]
     Active Substance: FERROUS SULFATE\FERROUS SULFATE, DRIED
  34. FLUNISOLIDE. [Concomitant]
     Active Substance: FLUNISOLIDE

REACTIONS (2)
  - Cataract operation [Recovered/Resolved]
  - Cataract [Recovered/Resolved]
